FAERS Safety Report 4330827-6 (Version None)
Quarter: 2004Q1

REPORT INFORMATION
  Report Type: 
  Country: None (occurrence: None)
  Receive Date: 20040331
  Receipt Date: 20040312
  Transmission Date: 20041129
  Serious: Yes (Hospitalization)
  Sender: FDA-Public Use
  Company Number: USA040361920

PATIENT
  Age: 21 Year
  Sex: Female

DRUGS (2)
  1. ZYPREXA [Suspect]
     Indication: BIPOLAR DISORDER
     Dosage: 15 MG DAY
     Dates: start: 20040201
  2. LITHIUM [Concomitant]

REACTIONS (2)
  - BIPOLAR DISORDER [None]
  - VISION BLURRED [None]
